FAERS Safety Report 6119658-4 (Version None)
Quarter: 2009Q1

REPORT INFORMATION
  Report Type: 
  Country: None (occurrence: None)
  Receive Date: 20090311
  Receipt Date: 20090225
  Transmission Date: 20090719
  Serious: Yes (Other)
  Sender: FDA-Public Use
  Company Number: DSA_33299_2009

PATIENT
  Age: 15 Year
  Sex: Female

DRUGS (3)
  1. LORAZEPAM [Suspect]
     Dosage: 20 MG 1X, NOT THE PRESCRIBED AMOUNT) ORAL
     Route: 048
     Dates: start: 20090109, end: 20090109
  2. CITALOPRAM HYDROBROMIDE [Suspect]
     Dosage: 60 MG 1X, NOT THE PRESCRIBED AMOUNT ORAL
     Route: 048
     Dates: start: 20090109, end: 20090109
  3. NOVOTHYRAL (NOVOTHYRAL - LEVOTHYROXINE SODIUM/LIOTHYRONINE SODIUM) (NO [Suspect]
     Dosage: 800 UG 1X, NOT THE PRESCRIBED AMOUNT ORAL
     Route: 048
     Dates: start: 20090109, end: 20090109

REACTIONS (5)
  - DISORIENTATION [None]
  - ENURESIS [None]
  - FATIGUE [None]
  - MULTIPLE DRUG OVERDOSE INTENTIONAL [None]
  - SUICIDE ATTEMPT [None]
